FAERS Safety Report 14798564 (Version 1)
Quarter: 2018Q2

REPORT INFORMATION
  Report Type: Spontaneous
  Country: GB (occurrence: GB)
  Receive Date: 20180424
  Receipt Date: 20180424
  Transmission Date: 20180711
  Serious: Yes (Other)
  Sender: FDA-Public Use
  Company Number: GB-ACCORD-065991

PATIENT
  Age: 43 Year
  Sex: Female

DRUGS (3)
  1. HYDROXYCHLOROQUINE [Concomitant]
     Active Substance: HYDROXYCHLOROQUINE
     Indication: MULTICENTRIC RETICULOHISTIOCYTOSIS
     Dosage: REDUCED DOSE
     Dates: start: 2012
  2. PREDNISOLONE. [Concomitant]
     Active Substance: PREDNISOLONE
     Indication: MULTICENTRIC RETICULOHISTIOCYTOSIS
     Dosage: REDUCED DOSE
     Dates: start: 2012
  3. METHOTREXATE. [Suspect]
     Active Substance: METHOTREXATE
     Indication: MULTICENTRIC RETICULOHISTIOCYTOSIS
     Dates: start: 201211, end: 201302

REACTIONS (2)
  - Serum procollagen type III N-terminal propeptide increased [Unknown]
  - Off label use [Unknown]

NARRATIVE: CASE EVENT DATE: 201302
